FAERS Safety Report 6388763-X (Version None)
Quarter: 2009Q4

REPORT INFORMATION
  Report Type: 
  Country: None (occurrence: None)
  Receive Date: 20091005
  Receipt Date: 20090924
  Transmission Date: 20100525
  Serious: Yes (Hospitalization, Other)
  Sender: FDA-Public Use
  Company Number: CH-ELI_LILLY_AND_COMPANY-CH200907001941

PATIENT
  Age: 40 Year
  Sex: Male
  Weight: 66 kg

DRUGS (6)
  1. ZYPREXA [Suspect]
     Indication: BIPOLAR I DISORDER
     Dosage: 10 MG, DAILY (1/D)
     Route: 048
     Dates: start: 20090108, end: 20090108
  2. ZYPREXA [Suspect]
     Dosage: 10 MG, DAILY (1/D)
     Route: 048
     Dates: start: 20090109, end: 20090109
  3. TEMESTA [Concomitant]
     Indication: BIPOLAR I DISORDER
     Dosage: 1 MG, DAILY (1/D)
     Route: 048
     Dates: start: 20090108, end: 20090108
  4. TEMESTA [Concomitant]
     Dosage: 1 MG, DAILY (1/D)
     Route: 048
     Dates: start: 20090109, end: 20090109
  5. SEROQUEL [Concomitant]
     Dosage: 300 MG, UNK
     Dates: start: 20090109, end: 20090109
  6. SEROQUEL [Concomitant]
     Dosage: 600 MG, UNK
     Dates: start: 20090110

REACTIONS (5)
  - ACCIDENTAL EXPOSURE [None]
  - DISSOCIATIVE DISORDER [None]
  - DRUG INTERACTION [None]
  - STUPOR [None]
  - URINARY INCONTINENCE [None]
